FAERS Safety Report 6619187-5 (Version None)
Quarter: 2010Q1

REPORT INFORMATION
  Report Type: 
  Country: None (occurrence: None)
  Receive Date: 20100305
  Receipt Date: 20100305
  Transmission Date: 20100710
  Serious: No
  Sender: FDA-Public Use
  Company Number: None

PATIENT
  Sex: Female
  Weight: 113.3993 kg

DRUGS (2)
  1. ROLAIDS [Suspect]
     Indication: DYSPEPSIA
     Dosage: 2 TABLETS 4 TIMES DAILY BY MOUTH (CHEWABLE)
     Route: 048
     Dates: start: 20100216, end: 20100221
  2. ROLAIDS [Suspect]
     Indication: PROPHYLAXIS
     Dosage: 2 TABLETS 4 TIMES DAILY BY MOUTH (CHEWABLE)
     Route: 048
     Dates: start: 20100216, end: 20100221

REACTIONS (5)
  - ABDOMINAL PAIN UPPER [None]
  - DIARRHOEA [None]
  - IMPAIRED WORK ABILITY [None]
  - PRODUCT ODOUR ABNORMAL [None]
  - PRODUCT QUALITY ISSUE [None]
